FAERS Safety Report 21570496 (Version 2)
Quarter: 2022Q4

REPORT INFORMATION
  Report Type: Spontaneous
  Country: CA (occurrence: CA)
  Receive Date: 20221109
  Receipt Date: 20221109
  Transmission Date: 20230112
  Serious: Yes (Other)
  Sender: FDA-Public Use
  Company Number: CA-PFIZER INC-202201277449

PATIENT
  Age: 48 Year
  Sex: Female

DRUGS (2)
  1. ABRILADA [Suspect]
     Active Substance: ADALIMUMAB-AFZB
     Indication: Psoriatic arthropathy
     Dosage: 40 MG EVERY 2 WEEKS, PREFILLED PEN
     Route: 058
     Dates: start: 20220718
  2. SULFASALAZINE [Suspect]
     Active Substance: SULFASALAZINE
     Indication: Psoriatic arthropathy
     Dosage: 1 DF
     Route: 065
     Dates: start: 2020

REACTIONS (3)
  - C-reactive protein increased [Not Recovered/Not Resolved]
  - Condition aggravated [Recovering/Resolving]
  - Synovitis [Recovered/Resolved]

NARRATIVE: CASE EVENT DATE: 20220512
